FAERS Safety Report 24579374 (Version 1)
Quarter: 2024Q4

REPORT INFORMATION
  Report Type: Spontaneous
  Country: CH (occurrence: CH)
  Receive Date: 20241105
  Receipt Date: 20241105
  Transmission Date: 20250115
  Serious: Yes (Hospitalization, Other)
  Sender: CHEPLAPHARM
  Company Number: None

PATIENT
  Age: 52 Year
  Sex: Male
  Weight: 107.69 kg

DRUGS (9)
  1. CLONAZEPAM [Interacting]
     Active Substance: CLONAZEPAM
     Dosage: CLONAZEPAM PER ORAL, 2 MG, PER ORALLY, ONCE DAILY, IN THE EVENING, FIXED?? CLONAZEPAM PER ORAL, ...
     Route: 048
  2. CLONAZEPAM [Interacting]
     Active Substance: CLONAZEPAM
     Dosage: CLONAZEPAM PER ORAL, 2 MG, PER ORAL, 1X DAILY, IN THE EVENING, FIXED??CLONAZEPAM PER ORAL, 1 MG,...
     Route: 048
  3. OLANZAPINE [Interacting]
     Active Substance: OLANZAPINE
     Dosage: OLANZAPINE (ZYPREXA) 5 MG FILM-COATED TABLET, 5 MG, ORALLY, 3 TIMES DAILY, AS NEEDED, SCHEDULE
     Route: 048
  4. DIAZEPAM [Interacting]
     Active Substance: DIAZEPAM
     Dosage: ? DIAZEPAM (PSYCHOPAX) 12.5 MG/ML DROPS, 5 DROPS, ORAL, FREELY ADJUSTABLE
     Route: 048
  5. DIAZEPAM [Interacting]
     Active Substance: DIAZEPAM
     Dosage: ? DIAZEPAM PER ORAL, 5 MG, PER ORAL, 1X DAILY, IN THE MORNING, FIXED?DAILY DOSE: 5 MILLIGRAM
     Route: 048
  6. DIAZEPAM [Interacting]
     Active Substance: DIAZEPAM
     Dosage: DIAZEPAM PER ORAL, 10 MG, PER ORA..?DAILY DOSE: 10 MILLIGRAM
     Route: 048
  7. MORPHINE SULFATE [Interacting]
     Active Substance: MORPHINE SULFATE
     Dosage: MORPHINE SULFATE (SEVRE-LONG) 200 MG SUSTAINED-RELEASE CAPSULE, 1,000 MG, ORAL, ONCE DAILY, MORNI...
     Route: 048
  8. MORPHINE SULFATE [Interacting]
     Active Substance: MORPHINE SULFATE
     Dosage: DAILY DOSE: 400 MILLIGRAM
     Route: 048
  9. REMERON [Interacting]
     Active Substance: MIRTAZAPINE
     Dosage: MIRTAZAPINE (REMERON) 30 MG FILM-COATED TABLET, 30 MG, ORAL, ONCE DAILY, AT NIGHT, FIXED
     Route: 048

REACTIONS (2)
  - Respiratory depression [Recovering/Resolving]
  - Drug interaction [Unknown]

NARRATIVE: CASE EVENT DATE: 20240501
